FAERS Safety Report 8047559-3 (Version None)
Quarter: 2012Q1

REPORT INFORMATION
  Report Type: 
  Country: None (occurrence: None)
  Receive Date: 20120116
  Receipt Date: 20120105
  Transmission Date: 20120608
  Serious: Yes (Death, Hospitalization)
  Sender: FDA-Public Use
  Company Number: US-GLAXOSMITHKLINE-A0917635A

PATIENT
  Age: 68 Year
  Sex: Male
  Weight: 89.5 kg

DRUGS (7)
  1. ALTACE [Concomitant]
  2. HYDROCHLOROTHIAZIDE [Concomitant]
  3. GLYBURIDE [Concomitant]
  4. LOVASTATIN [Concomitant]
  5. METFORMIN HCL [Concomitant]
  6. SYNTHROID [Concomitant]
  7. AVANDIA [Suspect]
     Indication: DIABETES MELLITUS
     Dosage: 8MG TWICE PER DAY
     Route: 048
     Dates: start: 20000101

REACTIONS (5)
  - CARDIAC FAILURE CONGESTIVE [None]
  - RENAL INJURY [None]
  - DEATH [None]
  - HEPATIC CIRRHOSIS [None]
  - PULMONARY HYPERTENSION [None]
